FAERS Safety Report 6870785-3 (Version None)
Quarter: 2010Q3

REPORT INFORMATION
  Report Type: 
  Country: None (occurrence: None)
  Receive Date: 20100723
  Receipt Date: 20100716
  Transmission Date: 20110219
  Serious: No
  Sender: FDA-Public Use
  Company Number: US-TEVA-241679USA

PATIENT
  Sex: Female
  Weight: 56.75 kg

DRUGS (3)
  1. ALBUTEROL SULFATE AUTOHALER [Suspect]
     Dosage: 2 PUFFS
     Route: 055
     Dates: start: 20100712, end: 20100716
  2. ISOCARBOXAZID [Concomitant]
  3. DIAZEPAM [Concomitant]

REACTIONS (2)
  - FEELING JITTERY [None]
  - NERVOUSNESS [None]
